FAERS Safety Report 4351526-0 (Version None)
Quarter: 2004Q2

REPORT INFORMATION
  Report Type: 
  Country: None (occurrence: None)
  Receive Date: 20040503
  Receipt Date: 20031007
  Transmission Date: 20050107
  Serious: Yes (Hospitalization)
  Sender: FDA-Public Use
  Company Number: 200311149JP

PATIENT
  Age: 36 Year
  Sex: Female
  Weight: 47.4 kg

DRUGS (3)
  1. ARAVA [Suspect]
     Indication: RHEUMATOID ARTHRITIS
     Route: 048
     Dates: start: 20030917, end: 20040202
  2. DUOLUTON [Concomitant]
     Indication: ENDOMETRIOSIS
     Dosage: DOSE: 1 TABLET
     Route: 048
  3. LOXONIN [Concomitant]
     Indication: RHEUMATOID ARTHRITIS
     Dosage: DOSE: 1TABLET
     Route: 048
     Dates: start: 20000419

REACTIONS (9)
  - ALANINE AMINOTRANSFERASE INCREASED [None]
  - ASPARTATE AMINOTRANSFERASE INCREASED [None]
  - BLOOD ALKALINE PHOSPHATASE INCREASED [None]
  - INFLUENZA [None]
  - LIVER FUNCTION TEST ABNORMAL [None]
  - NASOPHARYNGITIS [None]
  - PHARYNGOLARYNGEAL PAIN [None]
  - TONSILLITIS [None]
  - UPPER RESPIRATORY TRACT INFECTION [None]
